FAERS Safety Report 18001004 (Version 1)
Quarter: 2020Q3

REPORT INFORMATION
  Report Type: Spontaneous
  Country: CA (occurrence: CA)
  Receive Date: 20200709
  Receipt Date: 20200709
  Transmission Date: 20201103
  Serious: Yes (Hospitalization)
  Sender: FDA-Public Use
  Company Number: CA-TEVA-2020-CA-1797690

PATIENT
  Age: 1 Year
  Sex: Female

DRUGS (4)
  1. ETOPOSIDE INJECTION [Suspect]
     Active Substance: ETOPOSIDE
  2. IFOSFAMIDE FOR INJECTION, USP [Concomitant]
     Active Substance: IFOSFAMIDE
  3. VINCRISTINE SULFATE. [Concomitant]
     Active Substance: VINCRISTINE SULFATE
  4. DOXORUBICIN LIPOSOMAL [Concomitant]
     Active Substance: DOXORUBICIN

REACTIONS (1)
  - Febrile neutropenia [Unknown]
